FAERS Safety Report 8767166 (Version 1)
Quarter: 2012Q4

REPORT INFORMATION
  Report Type: 
  Country: US (occurrence: US)
  Receive Date: 20120904
  Receipt Date: 20120904
  Transmission Date: 20130627
  Serious: Yes (Other)
  Sender: FDA-Public Use
  Company Number: US-GLAXOSMITHKLINE-A0841261A

PATIENT
  Sex: Female
  Weight: 127.3 kg

DRUGS (1)
  1. AVANDIA [Suspect]
     Indication: DIABETES MELLITUS
     Dosage: 4MG Per day
     Route: 048
     Dates: end: 2007

REACTIONS (4)
  - Blindness unilateral [Unknown]
  - Cardiac failure congestive [Unknown]
  - Vision blurred [Unknown]
  - Pain [Unknown]
